FAERS Safety Report 19230815 (Version 1)
Quarter: 2021Q2

REPORT INFORMATION
  Report Type: Spontaneous
  Country: US (occurrence: US)
  Receive Date: 20210507
  Receipt Date: 20210507
  Transmission Date: 20210717
  Serious: No
  Sender: FDA-Public Use
  Company Number: US-MYLANLABS-2021M1025073

PATIENT
  Sex: Female
  Weight: 48 kg

DRUGS (4)
  1. PREDNISONE. [Concomitant]
     Active Substance: PREDNISONE
     Dosage: UNK
  2. YUPELRI [Suspect]
     Active Substance: REVEFENACIN
     Indication: CHRONIC OBSTRUCTIVE PULMONARY DISEASE
     Dosage: 175 MICROGRAM, QD
     Route: 048
  3. MOTRIN [Concomitant]
     Active Substance: IBUPROFEN
     Dosage: UNK
  4. YUPELRI [Suspect]
     Active Substance: REVEFENACIN
     Dosage: 175 MICROGRAM, QD
     Route: 048
     Dates: start: 20210419

REACTIONS (8)
  - Vision blurred [Not Recovered/Not Resolved]
  - Pain in extremity [Not Recovered/Not Resolved]
  - Eye pain [Not Recovered/Not Resolved]
  - Dyspnoea [Not Recovered/Not Resolved]
  - Spinal pain [Not Recovered/Not Resolved]
  - Hypersensitivity [Not Recovered/Not Resolved]
  - Headache [Not Recovered/Not Resolved]
  - Dysphagia [Not Recovered/Not Resolved]
